FAERS Safety Report 6807103-2 (Version None)
Quarter: 2010Q2

REPORT INFORMATION
  Report Type: 
  Country: None (occurrence: None)
  Receive Date: 20100629
  Receipt Date: 20080714
  Transmission Date: 20101027
  Serious: No
  Sender: FDA-Public Use
  Company Number: US-PFIZER INC-2008059195

PATIENT
  Sex: Female
  Weight: 41 kg

DRUGS (5)
  1. ZYVOX [Suspect]
     Indication: STAPHYLOCOCCAL INFECTION
     Route: 042
     Dates: start: 20080701, end: 20080705
  2. AZITHROMYCIN [Concomitant]
  3. ANTIINFECTIVES [Concomitant]
  4. FLUCONAZOLE [Concomitant]
  5. LOVENOX [Concomitant]

REACTIONS (1)
  - DRUG RESISTANCE [None]
